FAERS Safety Report 6098259-0 (Version None)
Quarter: 2009Q1

REPORT INFORMATION
  Report Type: 
  Country: None (occurrence: None)
  Receive Date: 20090227
  Receipt Date: 20090220
  Transmission Date: 20090719
  Serious: Yes (Other)
  Sender: FDA-Public Use
  Company Number: CA-MERCK-0902CAN00098

PATIENT
  Age: 30 Year
  Sex: Male

DRUGS (1)
  1. PROSCAR [Suspect]
     Indication: ALOPECIA
     Route: 048

REACTIONS (3)
  - BLOOD CREATINE PHOSPHOKINASE INCREASED [None]
  - INCORRECT DOSE ADMINISTERED [None]
  - MYALGIA [None]
